FAERS Safety Report 5632606-6 (Version None)
Quarter: 2008Q1

REPORT INFORMATION
  Report Type: 
  Country: None (occurrence: None)
  Receive Date: 20080220
  Receipt Date: 20080208
  Transmission Date: 20080703
  Serious: Yes (Other)
  Sender: FDA-Public Use
  Company Number: US-PFIZER INC-2008002065

PATIENT
  Sex: Female
  Weight: 100 kg

DRUGS (12)
  1. DILANTIN [Suspect]
     Indication: CONVULSION
  2. LIPITOR [Suspect]
     Indication: CEREBROVASCULAR ACCIDENT
     Route: 048
  3. METFORMIN HCL [Concomitant]
  4. ASPIRIN [Concomitant]
  5. VASOTEC [Concomitant]
  6. RANITIDINE [Concomitant]
  7. DIAZEPAM [Concomitant]
  8. HYDROCODONE BITARTRATE [Concomitant]
  9. LAMICTAL [Concomitant]
  10. LANOXIN [Concomitant]
  11. PAXIL [Concomitant]
  12. AMITRIPTYLINE HCL [Concomitant]

REACTIONS (3)
  - BRONCHITIS [None]
  - CEREBROVASCULAR ACCIDENT [None]
  - HEART RATE IRREGULAR [None]
